FAERS Safety Report 4491311-2 (Version None)
Quarter: 2004Q3

REPORT INFORMATION
  Report Type: 
  Country: None (occurrence: None)
  Receive Date: 20040921
  Receipt Date: 20040311
  Transmission Date: 20050211
  Serious: Yes (Hospitalization)
  Sender: FDA-Public Use
  Company Number: 163-20785-04030343 (0)

PATIENT
  Age: 77 Year
  Sex: Female

DRUGS (1)
  1. THALOMID [Suspect]
     Dosage: 100 MG, DAILY, ORAL
     Route: 048

REACTIONS (3)
  - CONSTIPATION [None]
  - PNEUMONIA [None]
  - SOMNOLENCE [None]
